FAERS Safety Report 5149269-9 (Version None)
Quarter: 2006Q4

REPORT INFORMATION
  Report Type: 
  Country: None (occurrence: None)
  Receive Date: 20061113
  Receipt Date: 20051018
  Transmission Date: 20070319
  Serious: No
  Sender: FDA-Public Use
  Company Number: 421897

PATIENT
  Sex: Male

DRUGS (1)
  1. COREG [Suspect]
     Indication: HYPERTENSION
     Dosage: 100MG TWICE PER DAY
     Route: 048

REACTIONS (2)
  - INCORRECT DOSE ADMINISTERED [None]
  - LETHARGY [None]
